FAERS Safety Report 8278921-1 (Version None)
Quarter: 2012Q2

REPORT INFORMATION
  Report Type: 
  Country: None (occurrence: None)
  Receive Date: 20120412
  Receipt Date: 20110811
  Transmission Date: 20120825
  Serious: No
  Sender: FDA-Public Use
  Company Number: US-ASTRAZENECA-2011SE48783

PATIENT
  Age: 62 Year
  Sex: Female

DRUGS (3)
  1. EVISTA [Concomitant]
  2. BONIVA [Concomitant]
  3. NEXIUM [Suspect]
     Route: 048

REACTIONS (1)
  - OSTEOPOROSIS [None]
